FAERS Safety Report 24278049 (Version 1)
Quarter: 2024Q3

REPORT INFORMATION
  Report Type: Spontaneous
  Country: CN (occurrence: CN)
  Receive Date: 20240903
  Receipt Date: 20240903
  Transmission Date: 20241016
  Serious: Yes (Hospitalization)
  Sender: Waylis
  Company Number: CN-WAYLIS-2024-CN-000345

PATIENT
  Age: 49 Year
  Sex: Male

DRUGS (4)
  1. RABEPRAZOLE SODIUM [Suspect]
     Active Substance: RABEPRAZOLE SODIUM
     Indication: Helicobacter infection
     Dosage: 20.0 MILLIGRAM(S) (20 MILLIGRAM(S), 1 IN 1 DAY)
     Route: 048
     Dates: start: 20240806, end: 20240812
  2. BISMUTH [Concomitant]
     Active Substance: BISMUTH
     Dosage: 0.4 MILLIGRAM(S) (0.4 MILLIGRAM(S), 1 IN 1 DAY)
     Route: 048
     Dates: start: 20240806, end: 20240812
  3. DOXYCYCLINE HYCLATE [Suspect]
     Active Substance: DOXYCYCLINE HYCLATE
     Dosage: 0.2 GRAM(S) (0.2 GRAM(S), 1 IN 1 DAY)
     Route: 048
     Dates: start: 20240806, end: 20240812
  4. AMOXICILLIN [Suspect]
     Active Substance: AMOXICILLIN
     Dosage: 2.0 GRAM(S) (2 GRAM(S), 1 IN 1 DAY)
     Route: 048
     Dates: start: 20240806, end: 20240812

REACTIONS (1)
  - Hepatic function abnormal [Recovering/Resolving]

NARRATIVE: CASE EVENT DATE: 20240812
